FAERS Safety Report 16645749 (Version 1)
Quarter: 2019Q3

REPORT INFORMATION
  Report Type: Report from Study
  Country: GB (occurrence: GB)
  Receive Date: 20190730
  Receipt Date: 20190730
  Transmission Date: 20191004
  Serious: Yes (Other)
  Sender: FDA-Public Use
  Company Number: GB-TEVA-2019-GB-1015377

PATIENT
  Age: 35 Year
  Sex: Male
  Weight: 114.41 kg

DRUGS (1)
  1. COPAXONE [Suspect]
     Active Substance: GLATIRAMER ACETATE
     Indication: RELAPSING-REMITTING MULTIPLE SCLEROSIS
     Dosage: 17.1429 MILLIGRAM/MILLILITERS DAILY;
     Route: 058
     Dates: start: 20181023

REACTIONS (8)
  - Adverse event [Unknown]
  - Seizure like phenomena [Unknown]
  - Injection site vesicles [Recovered/Resolved]
  - Chills [Recovered/Resolved]
  - Syncope [Unknown]
  - Dyspnoea [Unknown]
  - Immobile [Recovered/Resolved]
  - Chest discomfort [Unknown]

NARRATIVE: CASE EVENT DATE: 20190123
